FAERS Safety Report 12979938 (Version 1)
Quarter: 2016Q4

REPORT INFORMATION
  Report Type: Spontaneous
  Country: US (occurrence: US)
  Receive Date: 20161128
  Receipt Date: 20161128
  Transmission Date: 20170207
  Serious: No
  Sender: FDA-Public Use
  Company Number: US-SUPERNUS PHARMACEUTICALS, INC.-2016SUP00181

PATIENT
  Sex: Male

DRUGS (4)
  1. TROKENDI XR [Suspect]
     Active Substance: TOPIRAMATE
     Dosage: 100 MG, 1X/DAY
  2. AMOXICILLIN. [Suspect]
     Active Substance: AMOXICILLIN
  3. LAMICTAL [Suspect]
     Active Substance: LAMOTRIGINE
  4. UNSPECIFIED PAIN MEDICATION [Suspect]
     Active Substance: UNSPECIFIED INGREDIENT

REACTIONS (2)
  - Unevaluable event [Unknown]
  - Insomnia [Not Recovered/Not Resolved]
